FAERS Safety Report 21726172 (Version 1)
Quarter: 2022Q4

REPORT INFORMATION
  Report Type: Spontaneous
  Country: US (occurrence: None)
  Receive Date: 20221213
  Receipt Date: 20221213
  Transmission Date: 20230113
  Serious: Yes (Other)
  Sender: FDA-Public Use
  Company Number: None

PATIENT
  Sex: Male

DRUGS (16)
  1. TACROLIMUS [Suspect]
     Active Substance: TACROLIMUS
     Indication: Renal transplant
     Dosage: FREQUENCY : AS DIRECTED;?
     Route: 048
  2. AMLODIPINE [Concomitant]
     Active Substance: AMLODIPINE BESYLATE
  3. ATORVASTATIN [Concomitant]
     Active Substance: ATORVASTATIN
  4. BUMETANIDE TAB [Concomitant]
  5. CARVEDILOL [Concomitant]
     Active Substance: CARVEDILOL
  6. DEXAMETHASONE [Concomitant]
     Active Substance: DEXAMETHASONE
  7. FEBUXOSTAT [Concomitant]
     Active Substance: FEBUXOSTAT
  8. GLIMEPIRIDE [Concomitant]
     Active Substance: GLIMEPIRIDE
  9. LOSARTAN POTASSIUM [Concomitant]
     Active Substance: LOSARTAN POTASSIUM
  10. METHYLPR SS INJ [Concomitant]
  11. PEG-3350/KCL SOL/SODIUM [Concomitant]
  12. PREDNISONE [Concomitant]
     Active Substance: PREDNISONE
  13. PREGABALIN [Concomitant]
     Active Substance: PREGABALIN
  14. TESTOST CYP INJ [Concomitant]
  15. VIAGRA [Concomitant]
     Active Substance: SILDENAFIL CITRATE
  16. WARFARIN [Concomitant]
     Active Substance: WARFARIN

REACTIONS (1)
  - Blood glucose decreased [None]
